FAERS Safety Report 5730081-4 (Version None)
Quarter: 2008Q2

REPORT INFORMATION
  Report Type: 
  Country: None (occurrence: None)
  Receive Date: 20080507
  Receipt Date: 20071105
  Transmission Date: 20081010
  Serious: Yes (Hospitalization)
  Sender: FDA-Public Use
  Company Number: FR-WYE-H00557407

PATIENT
  Sex: Male

DRUGS (6)
  1. CORDARONE [Suspect]
     Route: 048
     Dates: end: 20070101
  2. LEVOTHYROXINE SODIUM [Concomitant]
     Indication: HYPOTHYROIDISM
     Dosage: 150 MCG (10 DROPS) ONCE A DAY
     Route: 048
  3. PREVISCAN [Interacting]
     Dosage: 20 MG TABLET, FREQUENCY NOT SPECIFIED
     Route: 048
     Dates: end: 20070101
  4. NEXIUM [Concomitant]
     Dosage: 1 UNIT EVERY 1 DAY
     Route: 048
  5. ASPEGIC 1000 [Interacting]
     Indication: ATRIAL FIBRILLATION
     Route: 048
     Dates: end: 20070101
  6. PERINDOPRIL ERBUMINE [Concomitant]
     Indication: HYPERTENSION
     Route: 048

REACTIONS (2)
  - DRUG INTERACTION [None]
  - INTESTINAL HAEMORRHAGE [None]
